FAERS Safety Report 12243734 (Version 1)
Quarter: 2016Q2

REPORT INFORMATION
  Report Type: Spontaneous
  Country: FR (occurrence: FR)
  Receive Date: 20160406
  Receipt Date: 20160406
  Transmission Date: 20160815
  Serious: Yes (Hospitalization)
  Sender: FDA-Public Use
  Company Number: FR-009507513-1604FRA001031

PATIENT
  Sex: Female

DRUGS (3)
  1. GONAL-F [Suspect]
     Active Substance: FOLLITROPIN
     Indication: IN VITRO FERTILISATION
     Dosage: UNK
     Route: 058
     Dates: start: 201511, end: 201511
  2. OVITRELLE [Suspect]
     Active Substance: CHORIOGONADOTROPIN ALFA
     Indication: IN VITRO FERTILISATION
     Dosage: 250 MICROGRAM, ONE INTAKE
     Route: 058
     Dates: start: 20151122, end: 20151122
  3. ORGALUTRAN [Suspect]
     Active Substance: GANIRELIX ACETATE
     Indication: IN VITRO FERTILISATION
     Dosage: 0.25 MG, QD
     Route: 058
     Dates: start: 201511, end: 201511

REACTIONS (3)
  - Peritoneal haemorrhage [Recovered/Resolved]
  - Anaemia [Recovering/Resolving]
  - Ovarian hyperstimulation syndrome [Recovered/Resolved]
